FAERS Safety Report 9427498 (Version 1)
Quarter: 2013Q3

REPORT INFORMATION
  Report Type: Spontaneous
  Country: US (occurrence: None)
  Receive Date: 20130729
  Receipt Date: 20130729
  Transmission Date: 20140515
  Serious: No
  Sender: FDA-Public Use
  Company Number: None

PATIENT
  Age: 88 Year
  Sex: Female

DRUGS (2)
  1. DIOVAN (VALSARTAN) [Suspect]
     Indication: HYPERTENSION
     Dosage: 1 PILL
     Route: 048
     Dates: end: 20130610
  2. AMLODIPINE [Suspect]
     Route: 048
     Dates: end: 20130610

REACTIONS (5)
  - Dizziness [None]
  - Headache [None]
  - Vertigo [None]
  - Lethargy [None]
  - Diarrhoea [None]
